FAERS Safety Report 8045398-0 (Version None)
Quarter: 2012Q1

REPORT INFORMATION
  Report Type: 
  Country: None (occurrence: None)
  Receive Date: 20120113
  Receipt Date: 20120106
  Transmission Date: 20120608
  Serious: Yes (Hospitalization)
  Sender: FDA-Public Use
  Company Number: FR-PFIZER INC-2011287430

PATIENT
  Age: 56 Year
  Sex: Male

DRUGS (8)
  1. ERBITUX [Suspect]
     Dosage: 940 MG, SINGLE
     Route: 042
     Dates: start: 20110929, end: 20110929
  2. FLUOROURACIL [Suspect]
     Dosage: 2745 MG, 1X/DAY
     Route: 013
     Dates: start: 20110930, end: 20111001
  3. OXALIPLATIN [Suspect]
     Indication: COLORECTAL CANCER METASTATIC
     Dosage: 85 MG/M2, IN SPLIT DAILY DOSES FOR 3 DAYS, STARTING ON DAY 2
     Route: 013
     Dates: start: 20110513
  4. ERBITUX [Suspect]
     Indication: COLORECTAL CANCER METASTATIC
     Dosage: 500 MG/M2, DAY 1, UNK
     Route: 042
     Dates: start: 20110512
  5. FLUOROURACIL [Suspect]
     Indication: COLORECTAL CANCER METASTATIC
     Dosage: 2800 MG/M2, IN SPLIT DAILY DOSES FOR 3 DAYS
     Route: 013
     Dates: start: 20110513
  6. OXALIPLATIN [Suspect]
     Dosage: 160 MG, SINGLE
     Route: 013
     Dates: start: 20110930, end: 20110930
  7. IRINOTECAN HCL [Suspect]
     Indication: COLORECTAL CANCER METASTATIC
     Dosage: 180 MG/M2, DAY 2, UNK
     Route: 013
     Dates: start: 20110513
  8. IRINOTECAN HCL [Suspect]
     Dosage: 340 MG, SINGLE
     Route: 013
     Dates: start: 20110929, end: 20110929

REACTIONS (3)
  - JAUNDICE CHOLESTATIC [None]
  - ASCITES [None]
  - LIVER ABSCESS [None]
